FAERS Safety Report 7363047-1 (Version None)
Quarter: 2011Q1

REPORT INFORMATION
  Report Type: 
  Country: None (occurrence: None)
  Receive Date: 20110321
  Receipt Date: 20110318
  Transmission Date: 20110831
  Serious: Yes (Other)
  Sender: FDA-Public Use
  Company Number: US-PFIZER INC-2011060514

PATIENT
  Sex: Male
  Weight: 66 kg

DRUGS (3)
  1. ZOLOFT [Suspect]
     Indication: DEPRESSION
     Dosage: 150 MG, 1X/DAY
     Route: 048
  2. PROTONIX [Concomitant]
     Dosage: 40 MG, 1X/DAY
  3. NIASPAN [Concomitant]
     Dosage: 500 MG, 1X/DAY

REACTIONS (3)
  - ANXIETY [None]
  - HEADACHE [None]
  - DEPRESSION [None]
